FAERS Safety Report 19509940 (Version 2)
Quarter: 2021Q4

REPORT INFORMATION
  Report Type: Spontaneous
  Country: US (occurrence: US)
  Receive Date: 20210709
  Receipt Date: 20211102
  Transmission Date: 20220303
  Serious: No
  Sender: FDA-Public Use
  Company Number: US-APOTEX-2021AP010837

PATIENT
  Sex: Female

DRUGS (1)
  1. OMEGA-3-ACID ETHYL ESTERS [Suspect]
     Active Substance: OMEGA-3-ACID ETHYL ESTERS
     Indication: Blood cholesterol
     Dosage: 1 DOSAGE FORM, BID
     Route: 065

REACTIONS (2)
  - Product odour abnormal [Recovered/Resolved]
  - No adverse event [Unknown]
